FAERS Safety Report 20988442 (Version 2)
Quarter: 2022Q3

REPORT INFORMATION
  Report Type: Spontaneous
  Country: PL (occurrence: PL)
  Receive Date: 20220621
  Receipt Date: 20220729
  Transmission Date: 20221027
  Serious: Yes (Other)
  Sender: FDA-Public Use
  Company Number: PL-Merck Healthcare KGaA-9329595

PATIENT
  Age: 46 Year
  Sex: Male

DRUGS (10)
  1. ERBITUX [Suspect]
     Active Substance: CETUXIMAB
     Indication: Tongue neoplasm malignant stage unspecified
     Dosage: 400 MG/M2, WEEKLY (1/W) (DURATION OF FIRST INFUSION WAS 120 MIN)
     Route: 042
  2. ERBITUX [Suspect]
     Active Substance: CETUXIMAB
     Dosage: 250 MG/M2, WEEKLY (1/W) (DURATION OF SUBSEQUENT INFUSION WAS 60 MIN.)
     Route: 042
  3. FLUOROURACIL [Concomitant]
     Active Substance: FLUOROURACIL
     Indication: Tongue neoplasm malignant stage unspecified
     Dosage: UNK, UNKNOWN
     Route: 065
     Dates: start: 201910, end: 201911
  4. FLUOROURACIL [Concomitant]
     Active Substance: FLUOROURACIL
     Dosage: 1000 MG/M2, UNKNOWN (DAYS 1 TO 4)
  5. FLUOROURACIL [Concomitant]
     Active Substance: FLUOROURACIL
     Dosage: 800 MG/M2, UNKNOWN
  6. CISPLATIN [Concomitant]
     Active Substance: CISPLATIN
     Indication: Tongue neoplasm malignant stage unspecified
     Dosage: UNK, UNKNOWN
     Route: 065
     Dates: start: 201910, end: 201911
  7. CISPLATIN [Concomitant]
     Active Substance: CISPLATIN
     Dosage: 40 MG/M2, UNKNOWN
     Dates: start: 201912, end: 202001
  8. CISPLATIN [Concomitant]
     Active Substance: CISPLATIN
     Dosage: 100 MG/M2, UNKNOWN
  9. CISPLATIN [Concomitant]
     Active Substance: CISPLATIN
     Dosage: 80 MG/M2, UNKNOWN
  10. GRANULOCYTE COLONY-STIMULATING FACTOR NOS [Concomitant]
     Active Substance: GRANULOCYTE COLONY-STIMULATING FACTOR NOS
     Indication: Prophylaxis
     Dosage: UNK, UNKNOWN
     Route: 065

REACTIONS (3)
  - Thrombocytopenia [Unknown]
  - Neutropenia [Unknown]
  - Leukopenia [Unknown]
